FAERS Safety Report 24153137 (Version 3)
Quarter: 2024Q3

REPORT INFORMATION
  Report Type: Report from Study
  Country: US (occurrence: US)
  Receive Date: 20240730
  Receipt Date: 20240828
  Transmission Date: 20241017
  Serious: Yes (Other)
  Sender: TAKEDA
  Company Number: US-TAKEDA-2024TUS065481

PATIENT
  Age: 59 Year
  Sex: Female

DRUGS (10)
  1. PONATINIB [Suspect]
     Active Substance: PONATINIB
     Indication: Gastrointestinal stromal tumour
     Dosage: 45 MILLIGRAM, QD
     Route: 048
  2. PONATINIB [Suspect]
     Active Substance: PONATINIB
     Dosage: 45 MILLIGRAM, QD
     Route: 048
  3. AMLODIPINE BESYLATE [Concomitant]
     Active Substance: AMLODIPINE BESYLATE
     Dosage: UNK
     Route: 065
  4. ZINC [Concomitant]
     Active Substance: ZINC
     Dosage: UNK
     Route: 065
  5. VITAMIN C [Concomitant]
     Active Substance: ASCORBIC ACID
     Dosage: UNK
     Route: 065
  6. CRANBERRY [Concomitant]
     Active Substance: CRANBERRY
     Dosage: UNK
     Route: 065
  7. PREVACID [Concomitant]
     Active Substance: LANSOPRAZOLE
     Dosage: UNK
     Route: 065
  8. CLARITIN [Concomitant]
     Active Substance: LORATADINE
     Dosage: UNK
     Route: 065
  9. SENNA [Concomitant]
     Active Substance: SENNA LEAF\SENNOSIDES\SENNOSIDES A AND B
     Dosage: UNK
     Route: 065
  10. KEYTRUDA [Concomitant]
     Active Substance: PEMBROLIZUMAB
     Dosage: UNK
     Route: 065

REACTIONS (8)
  - Gastrointestinal stromal tumour [Unknown]
  - Neoplasm [Unknown]
  - Off label use [Unknown]
  - Vomiting [Recovering/Resolving]
  - Headache [Unknown]
  - Musculoskeletal stiffness [Unknown]
  - Diarrhoea [Unknown]
  - Constipation [Not Recovered/Not Resolved]

NARRATIVE: CASE EVENT DATE: 20240301
